FAERS Safety Report 13709135 (Version 1)
Quarter: 2017Q2

REPORT INFORMATION
  Report Type: Spontaneous
  Country: US (occurrence: US)
  Receive Date: 20170630
  Receipt Date: 20170630
  Transmission Date: 20170830
  Serious: Yes (Disabling)
  Sender: FDA-Public Use
  Company Number: None

PATIENT
  Age: 32 Year
  Sex: Male
  Weight: 60.3 kg

DRUGS (3)
  1. DIAZEPAM. [Concomitant]
     Active Substance: DIAZEPAM
  2. LORAZEPAM. [Suspect]
     Active Substance: LORAZEPAM
     Indication: GENERALISED ANXIETY DISORDER
     Dosage: ?          OTHER STRENGTH:MG;QUANTITY:30 TABLET(S);?
     Route: 048
     Dates: start: 20161201, end: 20170510
  3. MELATONIN [Concomitant]
     Active Substance: MELATONIN

REACTIONS (7)
  - Tinnitus [None]
  - Insomnia [None]
  - Muscle twitching [None]
  - Pelvic pain [None]
  - Muscle spasms [None]
  - Drug dose omission [None]
  - Anxiety [None]

NARRATIVE: CASE EVENT DATE: 20170203
